FAERS Safety Report 6778952-4 (Version None)
Quarter: 2010Q2

REPORT INFORMATION
  Report Type: 
  Country: None (occurrence: None)
  Receive Date: 20100618
  Receipt Date: 20100609
  Transmission Date: 20101027
  Serious: Yes (Life-Threatening, Hospitalization)
  Sender: FDA-Public Use
  Company Number: FR-KINGPHARMUSA00001-K201000448

PATIENT
  Age: 69 Year
  Sex: Male

DRUGS (8)
  1. ALTACE [Suspect]
     Indication: HYPERTENSION
     Dosage: 5 MG, QD
     Route: 048
  2. LIRAGLUTIDE [Suspect]
     Indication: TYPE 2 DIABETES MELLITUS
     Dosage: 6 MG, QD
     Route: 058
     Dates: start: 20100317, end: 20100317
  3. ASPIRIN [Concomitant]
  4. SIMVASTATIN [Concomitant]
  5. BAYMYCARD [Concomitant]
  6. BISOPROLOL [Concomitant]
  7. OMEPRAZOLE [Concomitant]
  8. METFORMIN HCL [Concomitant]

REACTIONS (7)
  - ANGIOEDEMA [None]
  - DRUG INTERACTION [None]
  - INCREASED BRONCHIAL SECRETION [None]
  - LOCAL SWELLING [None]
  - STRIDOR [None]
  - SWELLING FACE [None]
  - SWOLLEN TONGUE [None]
